FAERS Safety Report 6555189-5 (Version None)
Quarter: 2010Q1

REPORT INFORMATION
  Report Type: 
  Country: None (occurrence: None)
  Receive Date: 20100128
  Receipt Date: 20100119
  Transmission Date: 20100710
  Serious: Yes (Other)
  Sender: FDA-Public Use
  Company Number: DE-ASTRAZENECA-2010SE02503

PATIENT
  Age: 64 Year
  Sex: Male

DRUGS (9)
  1. NEXIUM [Suspect]
     Indication: GASTROOESOPHAGEAL REFLUX DISEASE
     Dosage: 20-40 MG OF ESOMEPRAZOLE DAILY CONTINUOUS THERAPY FOR SEVERAL YEARS
  2. NEXIUM [Suspect]
     Dosage: CONTINUOUS THERAPY FROM 2004 (AFTER 4 WEEKS TEMPORARY STOP DURING SURGERY) TO AUTUMN 2007
  3. PROTON-PUMP INHIBITOR [Suspect]
     Indication: GASTROOESOPHAGEAL REFLUX DISEASE
     Dosage: PROTON-PUMP INHIBITOR THERAPY BETWEEN 2007 AND 2008
  4. PROTON-PUMP INHIBITOR [Suspect]
     Dosage: RESTART OF PROTON-PUMP INHIBITOR THERAPY AFTER A 4 WEEKS CESSATION IN 2008
  5. CARVEDILOL [Concomitant]
     Indication: HYPERTENSION
  6. RAMIPRIL [Concomitant]
     Indication: HYPERTENSION
  7. HYDROCHLOROTHIAZIDE [Concomitant]
     Indication: HYPERTENSION
  8. AMLODIPINE [Concomitant]
     Indication: HYPERTENSION
  9. MOXONIDINE [Concomitant]
     Indication: HYPERTENSION

REACTIONS (1)
  - BLOOD CHROMOGRANIN A INCREASED [None]
